FAERS Safety Report 19117987 (Version 7)
Quarter: 2021Q2

REPORT INFORMATION
  Report Type: Report from Study
  Country: US (occurrence: US)
  Receive Date: 20210410
  Receipt Date: 20210630
  Transmission Date: 20210717
  Serious: Yes (Other)
  Sender: FDA-Public Use
  Company Number: NVSC2021US074795

PATIENT
  Sex: Female

DRUGS (7)
  1. XGEVA [Concomitant]
     Active Substance: DENOSUMAB
     Indication: PRODUCT USED FOR UNKNOWN INDICATION
     Dosage: UNK
     Route: 065
  2. PIQRAY [Suspect]
     Active Substance: ALPELISIB
     Dosage: 300 MG, QD
     Route: 048
     Dates: start: 20210322
  3. PIQRAY [Suspect]
     Active Substance: ALPELISIB
     Dosage: 150 MG
     Route: 048
     Dates: start: 20210513, end: 20210602
  4. PIQRAY [Suspect]
     Active Substance: ALPELISIB
     Indication: BREAST CANCER
     Dosage: 150 MG, QD (150MG X2=300MG DAILY)
     Route: 048
     Dates: start: 20210309
  5. PIQRAY [Suspect]
     Active Substance: ALPELISIB
     Dosage: 150 MG
     Route: 048
  6. FULVESTRANT. [Concomitant]
     Active Substance: FULVESTRANT
     Indication: PRODUCT USED FOR UNKNOWN INDICATION
     Dosage: UNK
     Route: 065
  7. PIQRAY [Suspect]
     Active Substance: ALPELISIB
     Dosage: 150 MG, QD
     Route: 048
     Dates: start: 20210421

REACTIONS (11)
  - Diarrhoea [Unknown]
  - Decreased appetite [Unknown]
  - Blood glucose increased [Unknown]
  - Cheilitis [Unknown]
  - Neuropathy peripheral [Unknown]
  - Feeling abnormal [Unknown]
  - Sensory loss [Unknown]
  - Hyperglycaemia [Unknown]
  - Dizziness [Recovered/Resolved]
  - Nausea [Unknown]
  - Balance disorder [Unknown]
